FAERS Safety Report 5041863-9 (Version None)
Quarter: 2006Q2

REPORT INFORMATION
  Report Type: 
  Country: None (occurrence: None)
  Receive Date: 20060630
  Receipt Date: 20060619
  Transmission Date: 20061013
  Serious: Yes (Death)
  Sender: FDA-Public Use
  Company Number: 2006S1004885

PATIENT
  Age: 48 Year
  Sex: Male

DRUGS (4)
  1. CLOZAPINE [Suspect]
     Indication: SCHIZOPHRENIA
     Dosage: 25 MG; QAM; ORAL; SEE IMAGE
     Route: 048
     Dates: start: 20060307, end: 20060501
  2. CLOZAPINE [Suspect]
     Indication: SCHIZOPHRENIA
     Dosage: 25 MG; QAM; ORAL; SEE IMAGE
     Route: 048
     Dates: start: 20050912
  3. CLOZAPINE [Suspect]
     Indication: SCHIZOPHRENIA
     Dosage: 300 MG; HS; ORAL
     Route: 048
     Dates: start: 20060307, end: 20060501
  4. CLOZAPINE [Suspect]
     Indication: SCHIZOPHRENIA
     Dosage: 300 MG; HS; ORAL
     Route: 048
     Dates: start: 20050912

REACTIONS (1)
  - MYOCARDIAL INFARCTION [None]
